FAERS Safety Report 4889335-6 (Version None)
Quarter: 2006Q1

REPORT INFORMATION
  Report Type: 
  Country: None (occurrence: None)
  Receive Date: 20060120
  Receipt Date: 20060120
  Transmission Date: 20060701
  Serious: Yes (Life-Threatening, Hospitalization, Disabling)
  Sender: FDA-Public Use
  Company Number: None

PATIENT
  Age: 57 Year
  Sex: Male
  Weight: 62 kg

DRUGS (2)
  1. DAPSONE [Suspect]
     Indication: ANTIBIOTIC PROPHYLAXIS
     Dosage: 1 TABLET   -100 MG-   ONCE DAILY  PO
     Route: 048
     Dates: start: 20051115, end: 20060116
  2. PRIMAQUINE [Suspect]
     Indication: ANTIBIOTIC PROPHYLAXIS
     Dosage: 1 TABLET -26.3 MG-  ONCE DAILY  PO
     Route: 048
     Dates: start: 20051212, end: 20060116

REACTIONS (1)
  - METHAEMOGLOBINAEMIA [None]
